FAERS Safety Report 8956352 (Version 1)
Quarter: 2012Q4

REPORT INFORMATION
  Report Type: Report from Study
  Country: US (occurrence: US)
  Receive Date: 20121210
  Receipt Date: 20121210
  Transmission Date: 20130627
  Serious: Yes (Other)
  Sender: FDA-Public Use
  Company Number: US-PFIZER INC-2010149869

PATIENT
  Sex: Male
  Weight: 68.03 kg

DRUGS (5)
  1. LIPITOR [Suspect]
     Indication: HIGH CHOLESTEROL
     Dosage: 20 mg, daily
  2. LIPITOR [Suspect]
     Indication: BLOOD CHOLESTEROL ABNORMAL
     Dosage: 10 mg, 1x/day
  3. ACCUPRIL [Suspect]
     Indication: BLOOD PRESSURE HIGH
     Dosage: 20 mg, daily
     Route: 048
  4. ACCUPRIL [Suspect]
     Indication: BLOOD PRESSURE
  5. PROPYLTHIOURACIL [Concomitant]
     Dosage: UNK

REACTIONS (8)
  - Diabetes mellitus [Unknown]
  - Gastrointestinal neoplasm [Unknown]
  - Gastrointestinal disorder [Unknown]
  - Thyroid disorder [Unknown]
  - Weight decreased [Unknown]
  - Palpitations [Unknown]
  - Surgery [Unknown]
  - Blood pressure abnormal [Unknown]
